FAERS Safety Report 6956369-7 (Version None)
Quarter: 2010Q3

REPORT INFORMATION
  Report Type: 
  Country: None (occurrence: None)
  Receive Date: 20100830
  Receipt Date: 20100823
  Transmission Date: 20110219
  Serious: Yes (Other)
  Sender: FDA-Public Use
  Company Number: A0877245A

PATIENT

DRUGS (1)
  1. HYCAMTIN [Suspect]

REACTIONS (1)
  - BLOOD BILIRUBIN INCREASED [None]
